FAERS Safety Report 19593178 (Version 1)
Quarter: 2021Q3

REPORT INFORMATION
  Report Type: Spontaneous
  Country: GB (occurrence: GB)
  Receive Date: 20210722
  Receipt Date: 20210722
  Transmission Date: 20211014
  Serious: Yes (Other)
  Sender: FDA-Public Use
  Company Number: GB-SUN PHARMACEUTICAL INDUSTRIES LTD-2020RR-275341

PATIENT
  Age: 88 Year
  Sex: Male

DRUGS (37)
  1. STATIN [Suspect]
     Active Substance: UNSPECIFIED INGREDIENT
     Indication: PRODUCT USED FOR UNKNOWN INDICATION
     Route: 065
  2. STATIN [Suspect]
     Active Substance: UNSPECIFIED INGREDIENT
     Indication: PROSTATE CANCER
     Route: 065
  3. LISINOPRIL. [Suspect]
     Active Substance: LISINOPRIL
     Indication: PROSTATE CANCER
     Dosage: UNK
     Route: 065
  4. ALLOPURINOL. [Suspect]
     Active Substance: ALLOPURINOL
     Indication: PROSTATE CANCER
     Dosage: UNK
     Route: 065
  5. LEUPRORELIN [Suspect]
     Active Substance: LEUPROLIDE ACETATE
     Indication: PROSTATE CANCER
     Dosage: UNK
     Route: 065
  6. AMLODIPINE [Suspect]
     Active Substance: AMLODIPINE BESYLATE
     Indication: PRODUCT USED FOR UNKNOWN INDICATION
  7. AMLODIPINE [Suspect]
     Active Substance: AMLODIPINE BESYLATE
     Indication: PRODUCT USED FOR UNKNOWN INDICATION
  8. SIMVASTATIN. [Suspect]
     Active Substance: SIMVASTATIN
     Indication: PROSTATE CANCER
     Dosage: UNK
     Route: 065
  9. NYSTATIN. [Suspect]
     Active Substance: NYSTATIN
     Indication: PULMONARY EMBOLISM
     Dosage: UNK
     Route: 065
  10. CARBOPLATIN;ETOPOSIDE [Concomitant]
     Indication: PROSTATE CANCER
     Dosage: UNK
     Route: 065
     Dates: start: 201912
  11. AMLODIPINE BESILATE [Suspect]
     Active Substance: AMLODIPINE BESYLATE
     Indication: PRODUCT USED FOR UNKNOWN INDICATION
  12. EDOXABAN [Suspect]
     Active Substance: EDOXABAN TOSYLATE
     Indication: PULMONARY EMBOLISM
     Dosage: UNK
     Route: 065
  13. STATIN [Suspect]
     Active Substance: UNSPECIFIED INGREDIENT
     Indication: PRODUCT USED FOR UNKNOWN INDICATION
     Dosage: UNK
     Route: 065
  14. ATORVASTATIN [Suspect]
     Active Substance: ATORVASTATIN
     Indication: PRODUCT USED FOR UNKNOWN INDICATION
  15. STATIN [Suspect]
     Active Substance: UNSPECIFIED INGREDIENT
     Indication: PULMONARY EMBOLISM
     Route: 065
  16. ATORVASTATIN CALCIUM. [Suspect]
     Active Substance: ATORVASTATIN CALCIUM
     Indication: PRODUCT USED FOR UNKNOWN INDICATION
  17. TIABENDAZOLE [Concomitant]
     Active Substance: THIABENDAZOLE
     Indication: PRODUCT USED FOR UNKNOWN INDICATION
  18. SIMVASTATIN. [Suspect]
     Active Substance: SIMVASTATIN
     Indication: PULMONARY EMBOLISM
     Dosage: UNK
     Route: 065
  19. AMLODIPIN [Suspect]
     Active Substance: AMLODIPINE BESYLATE
     Indication: PROSTATE CANCER
     Dosage: UNK
     Route: 065
  20. LUPRON DEPOT [Suspect]
     Active Substance: LEUPROLIDE ACETATE
     Indication: PROSTATE CANCER
     Dosage: UNK
     Route: 065
  21. STATIN [Suspect]
     Active Substance: UNSPECIFIED INGREDIENT
     Dosage: UNK
     Route: 065
  22. STATIN [Suspect]
     Active Substance: UNSPECIFIED INGREDIENT
     Dosage: UNK
     Route: 065
  23. AMLODIPINE BESILATE [Suspect]
     Active Substance: AMLODIPINE BESYLATE
     Indication: PRODUCT USED FOR UNKNOWN INDICATION
  24. CARBOPLATIN. [Concomitant]
     Active Substance: CARBOPLATIN
     Indication: PRODUCT USED FOR UNKNOWN INDICATION
  25. ETOPOSIDE. [Concomitant]
     Active Substance: ETOPOSIDE
     Indication: PRODUCT USED FOR UNKNOWN INDICATION
  26. ATORVASTATIN CALCIUM. [Suspect]
     Active Substance: ATORVASTATIN CALCIUM
     Indication: PRODUCT USED FOR UNKNOWN INDICATION
  27. CARBOPLATIN. [Concomitant]
     Active Substance: CARBOPLATIN
     Indication: PRODUCT USED FOR UNKNOWN INDICATION
  28. ETOPOSIDE. [Concomitant]
     Active Substance: ETOPOSIDE
     Indication: PRODUCT USED FOR UNKNOWN INDICATION
  29. AMLODIPIN [Suspect]
     Active Substance: AMLODIPINE BESYLATE
     Indication: PULMONARY EMBOLISM
  30. LUPRON DEPOT [Suspect]
     Active Substance: LEUPROLIDE ACETATE
     Indication: PULMONARY EMBOLISM
     Dosage: UNK
     Route: 065
     Dates: start: 2018
  31. NYSTATIN. [Suspect]
     Active Substance: NYSTATIN
     Indication: PROSTATE CANCER
     Dosage: UNK
     Route: 065
  32. ALLOPURINOL. [Suspect]
     Active Substance: ALLOPURINOL
     Indication: PULMONARY EMBOLISM
     Dosage: UNK
     Route: 065
  33. LEUPRORELIN [Suspect]
     Active Substance: LEUPROLIDE ACETATE
     Indication: PULMONARY EMBOLISM
     Dosage: UNK
     Route: 065
     Dates: start: 2018
  34. LISINOPRIL. [Suspect]
     Active Substance: LISINOPRIL
     Indication: PULMONARY EMBOLISM
     Dosage: UNK
     Route: 065
  35. AMLODIPINE [Suspect]
     Active Substance: AMLODIPINE BESYLATE
     Indication: PRODUCT USED FOR UNKNOWN INDICATION
  36. AMLODIPINE [Suspect]
     Active Substance: AMLODIPINE BESYLATE
     Indication: PRODUCT USED FOR UNKNOWN INDICATION
  37. CARBOPLATIN;ETOPOSIDE [Concomitant]
     Indication: CHEMOTHERAPY
     Dosage: UNK ()
     Route: 065

REACTIONS (10)
  - Off label use [Unknown]
  - Hydronephrosis [Unknown]
  - Pelvic mass [Unknown]
  - Blood urea abnormal [Unknown]
  - Prostate cancer recurrent [Unknown]
  - Lymphadenopathy [Unknown]
  - Malignant transformation [Unknown]
  - Pulmonary embolism [Unknown]
  - Disease progression [Unknown]
  - Blood electrolytes abnormal [Unknown]

NARRATIVE: CASE EVENT DATE: 201912
